FAERS Safety Report 24725363 (Version 1)
Quarter: 2024Q4

REPORT INFORMATION
  Report Type: Report from Study
  Country: US (occurrence: US)
  Receive Date: 20241212
  Receipt Date: 20241212
  Transmission Date: 20250115
  Serious: Yes (Hospitalization)
  Sender: EMD SERONO INC
  Company Number: US-Merck Healthcare KGaA-2024059959

PATIENT
  Age: 48 Year
  Sex: Female

DRUGS (1)
  1. MAVENCLAD [Suspect]
     Active Substance: CLADRIBINE
     Indication: Multiple sclerosis
     Dosage: YEAR ONE MONTH ONE THERAPY?THERAPY END DATE: 12-NOV-2024

REACTIONS (9)
  - Hypertension [Unknown]
  - Tinnitus [Unknown]
  - Deafness [Unknown]
  - Ear discomfort [Unknown]
  - Ear pain [Unknown]
  - Chills [Recovered/Resolved]
  - Malaise [Unknown]
  - Chest discomfort [Unknown]
  - Feeling abnormal [Unknown]

NARRATIVE: CASE EVENT DATE: 20241108
